FAERS Safety Report 7577461-2 (Version None)
Quarter: 2011Q2

REPORT INFORMATION
  Report Type: 
  Country: None (occurrence: None)
  Receive Date: 20110628
  Receipt Date: 20110614
  Transmission Date: 20111010
  Serious: Yes (Hospitalization, Other)
  Sender: FDA-Public Use
  Company Number: CA-JNJFOC-20101200579

PATIENT
  Sex: Female
  Weight: 46 kg

DRUGS (6)
  1. CALCIUM CARBONATE [Concomitant]
     Route: 065
  2. REMICADE [Suspect]
     Indication: CROHN'S DISEASE
     Route: 042
     Dates: start: 20100628
  3. ZOLEDRONIC ACID [Concomitant]
     Route: 065
  4. VITAMIN D [Concomitant]
     Route: 065
  5. IMURAN [Concomitant]
     Route: 048
  6. PREDNISONE [Concomitant]
     Route: 048

REACTIONS (2)
  - POST PROCEDURAL COMPLICATION [None]
  - ABSCESS INTESTINAL [None]
